FAERS Safety Report 22376313 (Version 2)
Quarter: 2023Q2

REPORT INFORMATION
  Report Type: Spontaneous
  Country: US (occurrence: US)
  Receive Date: 20230527
  Receipt Date: 20230527
  Transmission Date: 20230722
  Serious: No
  Sender: FDA-Public Use
  Company Number: US-Dermavant-000511

PATIENT
  Sex: Female

DRUGS (1)
  1. TAPINAROF [Suspect]
     Active Substance: TAPINAROF
     Dosage: AREA OF APPLICATION:IN THE GROIN AREA

REACTIONS (1)
  - Application site rash [Unknown]
